FAERS Safety Report 10358738 (Version 5)
Quarter: 2015Q1

REPORT INFORMATION
  Report Type: Report from Study
  Country: CA (occurrence: CA)
  Receive Date: 20140804
  Receipt Date: 20150317
  Transmission Date: 20150720
  Serious: Yes (Other)
  Sender: FDA-Public Use
  Company Number: CA-ROCHE-CID000000002157771

PATIENT
  Age: 25 Year
  Sex: Female
  Weight: 69.9 kg

DRUGS (6)
  1. ACTEMRA [Suspect]
     Active Substance: TOCILIZUMAB
     Indication: RHEUMATOID ARTHRITIS
     Route: 042
     Dates: start: 20120628, end: 20140708
  2. METHYLPREDNISOLONE. [Concomitant]
     Active Substance: METHYLPREDNISOLONE
     Route: 042
  3. DIPHENHYDRAMINE [Concomitant]
     Active Substance: DIPHENHYDRAMINE
     Route: 048
  4. PREDNISONE. [Concomitant]
     Active Substance: PREDNISONE
  5. IBUPROFEN. [Concomitant]
     Active Substance: IBUPROFEN
  6. ACETAMINOPHEN. [Concomitant]
     Active Substance: ACETAMINOPHEN
     Route: 048

REACTIONS (8)
  - Head discomfort [Recovered/Resolved]
  - Arthritis [Not Recovered/Not Resolved]
  - Injection site erythema [Unknown]
  - Maternal exposure during pregnancy [Unknown]
  - Nasopharyngitis [Recovered/Resolved]
  - Postpartum depression [Recovering/Resolving]
  - Drug ineffective [Unknown]
  - Skin reaction [Unknown]

NARRATIVE: CASE EVENT DATE: 20120628
